FAERS Safety Report 4946469-5 (Version None)
Quarter: 2006Q1

REPORT INFORMATION
  Report Type: 
  Country: None (occurrence: None)
  Receive Date: 20060317
  Receipt Date: 20060306
  Transmission Date: 20060701
  Serious: Yes (Other)
  Sender: FDA-Public Use
  Company Number: PHEH2006US03040

PATIENT
  Age: 29 Year
  Sex: Female

DRUGS (10)
  1. ZOMETA [Suspect]
     Indication: METASTASES TO BONE
     Dosage: 4 MG, QMO
     Dates: start: 20050801
  2. MS CONTIN [Concomitant]
  3. LOTREL [Concomitant]
  4. ALLEGRA [Concomitant]
  5. WARFARIN SODIUM [Concomitant]
  6. TRASTUZUMAB [Concomitant]
     Dates: end: 20060201
  7. LORTAB [Concomitant]
  8. VINORELBINE TARTRATE [Concomitant]
     Dosage: UNK, UNK
     Dates: start: 20050401, end: 20060201
  9. TAXOTERE [Concomitant]
     Dosage: UNK, UNK
     Dates: start: 20050401, end: 20060201
  10. DEXAMETHASONE TAB [Concomitant]
     Dates: start: 20050401, end: 20051001

REACTIONS (4)
  - MASTECTOMY [None]
  - PAIN IN JAW [None]
  - TEMPOROMANDIBULAR JOINT SYNDROME [None]
  - TOOTH FRACTURE [None]
